FAERS Safety Report 4740307-1 (Version None)
Quarter: 2005Q3

REPORT INFORMATION
  Report Type: 
  Country: None (occurrence: None)
  Receive Date: 20050805
  Receipt Date: 20050728
  Transmission Date: 20060218
  Serious: Yes (Other)
  Sender: FDA-Public Use
  Company Number: 05-06-1093

PATIENT
  Age: 91 Year
  Sex: Female
  Weight: 75 kg

DRUGS (5)
  1. TRAMADOL HCL [Suspect]
     Indication: ANALGESIC EFFECT
     Dosage: 50MG ORAL
     Route: 048
     Dates: start: 20050607, end: 20050608
  2. ZANDIP [Concomitant]
  3. QUININE SULPHATE [Concomitant]
  4. LACTULOSE [Concomitant]
  5. MOVICOL [Concomitant]

REACTIONS (3)
  - COLD SWEAT [None]
  - CONFUSIONAL STATE [None]
  - FEELING COLD [None]
